FAERS Safety Report 5689208-5 (Version None)
Quarter: 2008Q1

REPORT INFORMATION
  Report Type: 
  Country: None (occurrence: None)
  Receive Date: 20080331
  Receipt Date: 20080326
  Transmission Date: 20080703
  Serious: Yes (Hospitalization)
  Sender: FDA-Public Use
  Company Number: US-BRISTOL-MYERS SQUIBB COMPANY-14127468

PATIENT
  Age: 52 Year
  Sex: Male

DRUGS (14)
  1. DASATINIB [Suspect]
     Indication: NON-HODGKIN'S LYMPHOMA
     Dosage: DRUG WAS HELD ON 17-MAR-2008.LAST DOSE WAS ON 16-MAR-2008.
     Route: 048
     Dates: start: 20080227
  2. TOPROL-XL [Concomitant]
     Route: 048
  3. NEXIUM [Concomitant]
     Route: 048
  4. ALLOPURINOL [Concomitant]
     Route: 048
  5. CYMBALTA [Concomitant]
     Route: 048
  6. ACYCLOVIR [Concomitant]
     Route: 048
  7. FLUCONAZOLE [Concomitant]
     Dosage: M-W-F
  8. BACTRIM DS [Concomitant]
     Dosage: 1 TABLET BID, MON AND THUR
     Route: 048
  9. COMPAZINE [Concomitant]
  10. REGLAN [Concomitant]
     Route: 048
  11. ZOFRAN [Concomitant]
     Route: 048
  12. ATIVAN [Concomitant]
     Route: 048
  13. ROXANOL [Concomitant]
     Indication: BREAKTHROUGH PAIN
     Dosage: 15 - 30MG
     Route: 048
  14. MS CONTIN [Concomitant]
     Route: 048

REACTIONS (9)
  - ADRENAL INSUFFICIENCY [None]
  - ANOREXIA [None]
  - ASTHENIA [None]
  - BACTERIA STOOL IDENTIFIED [None]
  - BACTERIAL INFECTION [None]
  - FATIGUE [None]
  - HYPONATRAEMIA [None]
  - ORAL CANDIDIASIS [None]
  - ORTHOSTATIC HYPOTENSION [None]
